FAERS Safety Report 7471676-X (Version None)
Quarter: 2011Q2

REPORT INFORMATION
  Report Type: 
  Country: None (occurrence: None)
  Receive Date: 20110502
  Receipt Date: 20110418
  Transmission Date: 20111010
  Serious: Yes (Other)
  Sender: FDA-Public Use
  Company Number: DSU-2011-02797

PATIENT
  Age: 37 Year
  Sex: Male

DRUGS (5)
  1. COLCHICINE (COLCHICINE) (COLCHICINE) [Concomitant]
  2. INDOMETHACIN [Concomitant]
  3. LOVAZA (OMEGA-3 MARINE TRIGLYCERIDES (OMEGA-3 MARINE TRIGLYCERIDES) [Concomitant]
  4. ALLOPURINOL [Concomitant]
  5. AZOR [Suspect]
     Indication: HYPERTENSION
     Dosage: 5/40MG (QD), PER ORAL ; 5/40MG (QD),PER ORAL
     Route: 048
     Dates: start: 20060101

REACTIONS (7)
  - IMPAIRED WORK ABILITY [None]
  - MUSCULOSKELETAL PAIN [None]
  - ROAD TRAFFIC ACCIDENT [None]
  - PAIN IN EXTREMITY [None]
  - NECK PAIN [None]
  - BACK PAIN [None]
  - ECONOMIC PROBLEM [None]
